FAERS Safety Report 23966549 (Version 1)
Quarter: 2024Q2

REPORT INFORMATION
  Report Type: Report from Study
  Country: US (occurrence: US)
  Receive Date: 20240612
  Receipt Date: 20240612
  Transmission Date: 20240716
  Serious: Yes (Hospitalization)
  Sender: FDA-Public Use
  Company Number: US-PFIZER INC-202400180401

PATIENT
  Age: 58 Year
  Sex: Female

DRUGS (1)
  1. IBRANCE [Suspect]
     Active Substance: PALBOCICLIB
     Dosage: 75 MG, DAILY, 1 TABLET  X 21 DAYS ON, 7 DAYS OFF
     Route: 048

REACTIONS (2)
  - Hypotension [Not Recovered/Not Resolved]
  - Diarrhoea [Recovering/Resolving]
